FAERS Safety Report 9677864 (Version 2)
Quarter: 2013Q4

REPORT INFORMATION
  Report Type: Spontaneous
  Country: JP (occurrence: JP)
  Receive Date: 20131108
  Receipt Date: 20131108
  Transmission Date: 20140711
  Serious: Yes (Life-Threatening, Hospitalization)
  Sender: FDA-Public Use
  Company Number: JP-SANOFI-AVENTIS-2011SA048354

PATIENT
  Age: 99 Year
  Sex: Female
  Weight: 36 kg

DRUGS (3)
  1. DAONIL [Suspect]
     Indication: ACCIDENTAL EXPOSURE TO PRODUCT
     Dosage: AT AROUND 11:30
     Route: 048
     Dates: start: 20110726, end: 20110726
  2. ARICEPT [Concomitant]
     Indication: DEMENTIA
     Route: 048
  3. NORVASC /DEN/ [Concomitant]
     Indication: HYPERTENSION
     Route: 048
     Dates: end: 20110726

REACTIONS (8)
  - Hypoglycaemic coma [Recovered/Resolved]
  - Accidental exposure to product [Recovered/Resolved]
  - Depressed level of consciousness [Recovered/Resolved]
  - Cold sweat [Recovered/Resolved]
  - Tachycardia [Recovered/Resolved]
  - Blood insulin increased [Recovered/Resolved]
  - Drug level increased [Recovered/Resolved]
  - C-reactive protein increased [Unknown]
